FAERS Safety Report 11877031 (Version 1)
Quarter: 2015Q4

REPORT INFORMATION
  Report Type: Spontaneous
  Country: US (occurrence: US)
  Receive Date: 20151229
  Receipt Date: 20151229
  Transmission Date: 20160305
  Serious: No
  Sender: FDA-Public Use
  Company Number: US-GLAXOSMITHKLINE-US2015181612

PATIENT
  Age: 66 Year
  Sex: Female

DRUGS (1)
  1. ARNUITY ELLIPTA [Suspect]
     Active Substance: FLUTICASONE FUROATE
     Indication: PRODUCT USED FOR UNKNOWN INDICATION
     Dosage: 1 DF, 1D

REACTIONS (5)
  - Erythema [Recovered/Resolved]
  - Panic reaction [Recovered/Resolved]
  - Flushing [Recovered/Resolved]
  - Dysphonia [Recovered/Resolved]
  - Disorientation [Recovered/Resolved]
